FAERS Safety Report 8585638-2 (Version None)
Quarter: 2012Q2

REPORT INFORMATION
  Report Type: 
  Country: None (occurrence: None)
  Receive Date: 20120423
  Receipt Date: 20101030
  Transmission Date: 20120825
  Serious: Yes (Other)
  Sender: FDA-Public Use
  Company Number: PHEH2010US01380

PATIENT
  Age: 60 Year
  Sex: Female

DRUGS (1)
  1. EXJADE [Suspect]
     Dosage: 1000 MG, DAILY, ORAL
     Route: 048

REACTIONS (8)
  - URINE ABNORMALITY [None]
  - NASAL CONGESTION [None]
  - DYSPEPSIA [None]
  - EPISTAXIS [None]
  - NASOPHARYNGITIS [None]
  - RENAL DISORDER [None]
  - CHROMATURIA [None]
  - OROPHARYNGEAL PAIN [None]
